FAERS Safety Report 22342322 (Version 1)
Quarter: 2023Q2

REPORT INFORMATION
  Report Type: Other
  Country: JP (occurrence: None)
  Receive Date: 20230519
  Receipt Date: 20230519
  Transmission Date: 20230721
  Serious: Yes (Hospitalization, Other)
  Sender: FDA-Public Use
  Company Number: JP-Saptalis Pharmaceuticals,LLC-000357

PATIENT
  Age: 8 Year
  Sex: Male

DRUGS (2)
  1. LEVOCARNITINE [Suspect]
     Active Substance: LEVOCARNITINE
     Indication: Hypocarnitinaemia
     Dosage: 10 MG/KG/D
     Route: 048
  2. LEVOCARNITINE [Suspect]
     Active Substance: LEVOCARNITINE
     Indication: Hypocarnitinaemia
     Dosage: 5 MG/KG
     Route: 048

REACTIONS (6)
  - Pyrexia [Unknown]
  - Vomiting [Unknown]
  - Gastrointestinal haemorrhage [Unknown]
  - Coma [Recovered/Resolved]
  - Hypoglycaemia [Recovered/Resolved]
  - Hypocarnitinaemia [Recovered/Resolved]
